FAERS Safety Report 8028331-7 (Version None)
Quarter: 2012Q1

REPORT INFORMATION
  Report Type: 
  Country: None (occurrence: None)
  Receive Date: 20120106
  Receipt Date: 20111230
  Transmission Date: 20120608
  Serious: Yes (Hospitalization)
  Sender: FDA-Public Use
  Company Number: PHHY2011PL111961

PATIENT
  Age: 65 Year
  Sex: Male

DRUGS (6)
  1. SIMVASTATIN [Suspect]
     Indication: LOW DENSITY LIPOPROTEIN INCREASED
     Dosage: 20 MG, QD
     Route: 048
  2. ACENOCOUMAROL [Interacting]
     Dosage: 2 MG, QD
     Route: 048
  3. BISOPROLOL [Concomitant]
     Dosage: 5 MG, QD
  4. ACENOCOUMAROL [Interacting]
     Indication: ATRIAL FIBRILLATION
     Dosage: 3 MG, QD
     Route: 048
  5. ASPIRIN [Concomitant]
     Dosage: 75 MG, QD
  6. RAMIPRIL [Concomitant]
     Dosage: 5 MG, QD

REACTIONS (3)
  - INTERNATIONAL NORMALISED RATIO INCREASED [None]
  - HAEMATURIA [None]
  - DRUG INTERACTION [None]
